FAERS Safety Report 7125048-8 (Version None)
Quarter: 2010Q4

REPORT INFORMATION
  Report Type: 
  Country: None (occurrence: None)
  Receive Date: 20101129
  Receipt Date: 20101115
  Transmission Date: 20110411
  Serious: Yes (Other)
  Sender: FDA-Public Use
  Company Number: US-JNJFOC-20101105842

PATIENT
  Age: 15 Year
  Sex: Female

DRUGS (3)
  1. TOPAMAX [Suspect]
     Indication: MIGRAINE PROPHYLAXIS
     Route: 048
  2. METFORMIN [Concomitant]
     Indication: ILL-DEFINED DISORDER
     Route: 065
  3. UNKNOWN MEDICATION [Concomitant]
     Indication: OBESITY
     Route: 065

REACTIONS (1)
  - MACULAR OEDEMA [None]
